FAERS Safety Report 8628107 (Version 3)
Quarter: 2012Q4

REPORT INFORMATION
  Report Type: 
  Country: AT (occurrence: AT)
  Receive Date: 20120621
  Receipt Date: 20121005
  Transmission Date: 20130627
  Serious: Yes (Hospitalization)
  Sender: FDA-Public Use
  Company Number: AT-B.I. PHARMACEUTICALS,INC./RIDGEFIELD-2012-EU-03183GD

PATIENT
  Age: 85 Year
  Sex: Male

DRUGS (15)
  1. DABIGATRAN ETEXILATE [Suspect]
     Indication: CEREBROVASCULAR ACCIDENT PROPHYLAXIS
     Dosage: 220 mg
     Route: 048
     Dates: start: 201111, end: 201202
  2. DABIGATRAN ETEXILATE [Suspect]
     Indication: ATRIAL FIBRILLATION
  3. LOPERAMIDE [Suspect]
     Indication: DIARRHOEA
     Dosage: 4 mg
     Dates: start: 201201
  4. CEFUROXIME [Suspect]
     Indication: URINARY TRACT INFECTION
     Dates: start: 201201
  5. LEUPRORELIN DEPOT [Suspect]
     Indication: PROSTATE CANCER METASTATIC
  6. SPIRONOLACTONE [Concomitant]
     Dosage: 25 mg
  7. XIPAMIDE [Concomitant]
     Dosage: 17.1429 mg
  8. FLUVASTATIN [Concomitant]
     Dosage: 40 mg
  9. PANTOPRAZOLE [Concomitant]
     Dosage: 40 mg
  10. ESCITALOPRAM [Concomitant]
     Dosage: 10 mg
  11. MAGNESIUM [Concomitant]
     Dosage: 40 mg
  12. ENALAPRIL [Concomitant]
     Dosage: 2.5 mg
  13. THEOPHYLLINE [Concomitant]
     Dosage: 400 mg
  14. BUDESONIDE [Concomitant]
     Dosage: 160 mcg
     Route: 055
  15. FORMOTEROL [Concomitant]
     Dosage: 4.5 mcg
     Route: 055

REACTIONS (5)
  - Haematuria [Recovered/Resolved]
  - Drug interaction [Unknown]
  - Urinary retention [Unknown]
  - Urinary tract infection [Unknown]
  - Diarrhoea [Recovered/Resolved]
